FAERS Safety Report 12627256 (Version 1)
Quarter: 2016Q3

REPORT INFORMATION
  Report Type: Spontaneous
  Country: LB (occurrence: LB)
  Receive Date: 20160805
  Receipt Date: 20160805
  Transmission Date: 20161109
  Serious: Yes (Other)
  Sender: FDA-Public Use
  Company Number: LB-SA-2016SA114827

PATIENT
  Age: 68 Year
  Sex: Male

DRUGS (1)
  1. PLAVIX [Suspect]
     Active Substance: CLOPIDOGREL BISULFATE
     Indication: THROMBOSIS PROPHYLAXIS
     Route: 065

REACTIONS (3)
  - Vascular stent thrombosis [Recovered/Resolved]
  - Drug ineffective [Unknown]
  - Vascular stent restenosis [Recovered/Resolved]
